FAERS Safety Report 6280654-8 (Version None)
Quarter: 2009Q3

REPORT INFORMATION
  Report Type: 
  Country: None (occurrence: None)
  Receive Date: 20090724
  Receipt Date: 20081031
  Transmission Date: 20100115
  Serious: Yes (Hospitalization)
  Sender: FDA-Public Use
  Company Number: A0755274A

PATIENT
  Age: 42 Year
  Sex: Female
  Weight: 104.5 kg

DRUGS (2)
  1. AVANDIA [Suspect]
     Dosage: 8MG PER DAY
     Route: 048
     Dates: start: 20040707, end: 20060801
  2. METOPROLOL SUCCINATE [Concomitant]
     Dates: start: 20030101, end: 20060101

REACTIONS (1)
  - CARDIAC FAILURE CONGESTIVE [None]
